FAERS Safety Report 10062758 (Version 1)
Quarter: 2014Q2

REPORT INFORMATION
  Report Type: Spontaneous
  Country: US (occurrence: None)
  Receive Date: 20140401
  Receipt Date: 20140401
  Transmission Date: 20141212
  Serious: Yes (Other)
  Sender: FDA-Public Use
  Company Number: PHEH2013US009149

PATIENT
  Sex: Male

DRUGS (3)
  1. EXELON [Suspect]
  2. KETOCONAZOLE [Suspect]
     Indication: TINEA INFECTION
  3. XANAX (ALPRAZOLAM) [Suspect]

REACTIONS (7)
  - Delusion [None]
  - Abasia [None]
  - Mental disorder [None]
  - Movement disorder [None]
  - Dysstasia [None]
  - Drug interaction [None]
  - Confusional state [None]
